FAERS Safety Report 23197072 (Version 1)
Quarter: 2023Q4

REPORT INFORMATION
  Report Type: Spontaneous
  Country: CN (occurrence: None)
  Receive Date: 20231117
  Receipt Date: 20231117
  Transmission Date: 20240109
  Serious: Yes (Other)
  Sender: FDA-Public Use
  Company Number: 2023A260645

PATIENT
  Age: 50 Year
  Sex: Female

DRUGS (1)
  1. SEROQUEL [Suspect]
     Active Substance: QUETIAPINE FUMARATE
     Indication: Insomnia
     Dates: start: 20231024, end: 20231024

REACTIONS (4)
  - Syncope [Recovering/Resolving]
  - Anaemia [Recovering/Resolving]
  - Intentional product use issue [Recovering/Resolving]
  - Off label use [Unknown]

NARRATIVE: CASE EVENT DATE: 20231024
